FAERS Safety Report 8559388-2 (Version None)
Quarter: 2012Q3

REPORT INFORMATION
  Report Type: 
  Country: None (occurrence: None)
  Receive Date: 20120802
  Receipt Date: 20120727
  Transmission Date: 20120928
  Serious: Yes (Death, Other)
  Sender: FDA-Public Use
  Company Number: JP-BAYER-2011-089136

PATIENT
  Age: 73 Year
  Sex: Female

DRUGS (3)
  1. NEXAVAR [Suspect]
     Dosage: 200 MG - DOSE REDUCED
     Dates: start: 20120101, end: 20120101
  2. NEXAVAR [Suspect]
     Indication: HEPATIC NEOPLASM MALIGNANT
     Dosage: 400 MG, BID
     Route: 048
     Dates: start: 20110909
  3. WARFARIN POTASSIUM [Concomitant]
     Dosage: UNK
     Route: 048
     Dates: start: 20111101

REACTIONS (5)
  - HEPATIC NEOPLASM MALIGNANT [None]
  - DUODENAL STENOSIS [None]
  - PALMAR-PLANTAR ERYTHRODYSAESTHESIA SYNDROME [None]
  - JAUNDICE CHOLESTATIC [None]
  - LIVER DISORDER [None]
